FAERS Safety Report 6303358-1 (Version None)
Quarter: 2009Q3

REPORT INFORMATION
  Report Type: 
  Country: None (occurrence: None)
  Receive Date: 20090810
  Receipt Date: 20080922
  Transmission Date: 20100115
  Serious: Yes (Hospitalization)
  Sender: FDA-Public Use
  Company Number: US-TYCO HEALTHCARE/MALLINCKRODT-T200801427

PATIENT

DRUGS (26)
  1. PAMELOR [Suspect]
     Indication: DEPRESSION
     Dosage: 100 MG, QD
     Dates: start: 20040101
  2. PROVIGIL [Concomitant]
     Indication: DEPRESSION
     Dosage: 200 MG, BID
     Route: 048
  3. RISPERDAL [Concomitant]
     Indication: THINKING ABNORMAL
     Dosage: 1 MG, BID
     Route: 048
  4. XANAX [Concomitant]
     Dosage: .25 MG, TID
     Route: 048
  5. KEPPRA [Concomitant]
     Indication: CONVULSION
     Dosage: 1250 MG, BID
     Route: 048
  6. LANTUS [Concomitant]
     Indication: DIABETES MELLITUS
     Dosage: 23 IU, QD (QAM)
     Route: 058
  7. AGGRENOX [Concomitant]
     Dosage: 25/200 MG, BID
     Route: 048
  8. OXYBUTYN [Concomitant]
     Indication: MICTURITION URGENCY
     Dosage: 5 MG, QID
     Route: 048
  9. ZOCOR [Concomitant]
     Indication: BLOOD CHOLESTEROL INCREASED
     Dosage: 20 MG, QD (QHS)
     Route: 048
  10. VITAMIN B12                        /00056201/ [Concomitant]
     Dosage: 500 MG, QD (QAM)
     Route: 048
  11. PREVACID [Concomitant]
     Indication: GASTROOESOPHAGEAL REFLUX DISEASE
     Dosage: 30 MG, QD
     Route: 048
  12. EXELON                             /01383201/ [Concomitant]
     Indication: PROPHYLAXIS
     Dosage: 4.6 MG, QD
     Route: 062
     Dates: start: 20080101
  13. LASIX [Concomitant]
     Dosage: 80 MG, QD
     Route: 048
  14. WELLBUTRIN [Concomitant]
     Dosage: 150 MG, TID (IN AM, AT NOON AND AT BEDTIME)
     Route: 048
  15. POTASSIUM CHLORIDE [Concomitant]
     Dosage: 20 MEQ, QD
     Route: 048
  16. LISINOPRIL [Concomitant]
     Indication: HYPERTENSION
     Dosage: 10 MG, QD
     Route: 048
  17. NAMENDA [Concomitant]
     Indication: MEMORY IMPAIRMENT
     Dosage: 10 MG, BID
     Route: 048
  18. FLAXSEED OIL [Concomitant]
     Indication: SUPPLEMENTATION THERAPY
     Dosage: UNK, TID
     Route: 048
  19. LYRICA [Concomitant]
     Indication: PAIN
     Dosage: 75 MG, QD (QHS)
     Route: 048
  20. BENADRYL [Concomitant]
     Indication: PRURITUS
     Dosage: 25 MG, Q6H PRN
     Route: 048
  21. VICODIN [Concomitant]
     Indication: PAIN
     Dosage: 5/500 MG, PRN
     Route: 048
  22. RESTASIS [Concomitant]
     Indication: DRY EYE
     Dosage: 1 GTT, BID
     Route: 047
  23. SYSTANE [Concomitant]
     Indication: DRY EYE
     Dosage: 1 GTT, QID
     Route: 047
  24. STOOL SOFTENER [Concomitant]
     Indication: FAECES HARD
     Dosage: 2-100 MG, QD (QAM)
     Route: 048
  25. CENTRUM SILVER                     /01292501/ [Concomitant]
     Indication: SUPPLEMENTATION THERAPY
     Dosage: UNK, QD
     Route: 048
  26. CHOLESTEROL [Concomitant]
     Indication: BLOOD CHOLESTEROL ABNORMAL
     Dosage: UNK, QD
     Route: 048

REACTIONS (5)
  - CONVULSION [None]
  - FEELING ABNORMAL [None]
  - GAIT DISTURBANCE [None]
  - HYPERTENSION [None]
  - SOMNOLENCE [None]
